FAERS Safety Report 6268487-X (Version None)
Quarter: 2009Q3

REPORT INFORMATION
  Report Type: 
  Country: None (occurrence: None)
  Receive Date: 20090715
  Receipt Date: 20070515
  Transmission Date: 20100115
  Serious: Yes (Other)
  Sender: FDA-Public Use
  Company Number: US-ASTRAZENECA-2006UW25270

PATIENT
  Age: 18988 Day
  Sex: Female
  Weight: 108.4 kg

DRUGS (39)
  1. SEROQUEL [Suspect]
     Indication: BIPOLAR DISORDER
     Dosage: 200 - 400 MG
     Route: 048
  2. SEROQUEL [Suspect]
     Indication: HALLUCINATION, AUDITORY
     Dosage: 200 - 400 MG
     Route: 048
  3. SEROQUEL [Suspect]
     Indication: SLEEP DISORDER
     Dosage: 200 - 400 MG
     Route: 048
  4. SEROQUEL [Suspect]
     Dosage: 25-600 MG
     Route: 048
     Dates: start: 20030312
  5. SEROQUEL [Suspect]
     Dosage: 25-600 MG
     Route: 048
     Dates: start: 20030312
  6. SEROQUEL [Suspect]
     Dosage: 25-600 MG
     Route: 048
     Dates: start: 20030312
  7. GEODON [Concomitant]
     Indication: SCHIZOPHRENIA
     Dosage: 20-200 MG
     Route: 048
  8. GEODON [Concomitant]
     Indication: BIPOLAR DISORDER
     Dosage: 20-200 MG
     Route: 048
  9. GEODON [Concomitant]
     Indication: DEPRESSION
     Dosage: 20-200 MG
     Route: 048
  10. HALDOL [Concomitant]
     Dosage: 5-15 MG
     Route: 048
  11. RISPERDAL [Concomitant]
  12. AMBIEN [Concomitant]
     Indication: INSOMNIA
     Route: 048
  13. AMBIEN [Concomitant]
     Indication: SLEEP DISORDER
     Route: 048
  14. ZOLOFT [Concomitant]
     Indication: DEPRESSION
     Dosage: 100-200 MG
     Route: 048
  15. VALIUM [Concomitant]
     Indication: ANXIETY
     Dosage: 5-15 MG
     Route: 048
  16. SYNTHROID [Concomitant]
     Indication: HYPOTHYROIDISM
     Dosage: 0.125-0.15 MG
     Route: 048
  17. SONATA [Concomitant]
     Indication: INSOMNIA
     Route: 048
  18. VYTORIN [Concomitant]
     Indication: BLOOD CHOLESTEROL
     Dosage: 10/40 MG DAILY
     Route: 048
  19. PREVACID [Concomitant]
     Indication: GASTROOESOPHAGEAL REFLUX DISEASE
     Route: 048
  20. REGLAN [Concomitant]
     Indication: GASTROOESOPHAGEAL REFLUX DISEASE
     Route: 048
  21. LAMICTAL [Concomitant]
     Indication: DEPRESSION
     Dosage: 200-400 MG
     Route: 048
  22. SINGULAIR [Concomitant]
     Indication: ASTHMA
     Route: 048
  23. SINGULAIR [Concomitant]
     Indication: HYPERSENSITIVITY
     Route: 048
  24. LASIX [Concomitant]
     Indication: FLUID RETENTION
     Route: 048
  25. LASIX [Concomitant]
     Indication: OEDEMA
     Route: 048
  26. COMBIVENT [Concomitant]
     Indication: CHRONIC OBSTRUCTIVE PULMONARY DISEASE
     Dosage: 2 PUFFS FOUR TIMES A DAY, 14.7 GM FOUR TIMES A DAY
     Route: 055
  27. COMBIVENT [Concomitant]
     Indication: ASTHMA
     Dosage: 2 PUFFS FOUR TIMES A DAY, 14.7 GM FOUR TIMES A DAY
     Route: 055
  28. ZOCOR [Concomitant]
     Indication: HYPERLIPIDAEMIA
     Route: 048
  29. EFFEXOR XR [Concomitant]
     Indication: DEPRESSION
     Dosage: 150-300 MG
     Route: 048
  30. LITHIUM CARBONATE [Concomitant]
     Indication: BIPOLAR DISORDER
     Dosage: 40-80 MG
     Route: 048
     Dates: end: 20050701
  31. HYDROCODONE [Concomitant]
     Indication: PAIN
     Dosage: 7.5 MG EVERY 8 HRS, 7.5/500 MG THREE TIMES A DAY
     Route: 048
  32. TOPAMAX [Concomitant]
     Dosage: 100-200 MG
     Route: 048
  33. PROMETHAZINE [Concomitant]
     Indication: NAUSEA
  34. PROMETHAZINE [Concomitant]
     Indication: MIGRAINE
  35. ASACOL [Concomitant]
     Dosage: 400-800 MG
     Route: 048
  36. PREMARIN [Concomitant]
     Indication: HORMONE REPLACEMENT THERAPY
     Route: 048
  37. LEVBID [Concomitant]
     Indication: RHINITIS ALLERGIC
     Route: 048
  38. CELEXA [Concomitant]
     Dosage: 20-40 MG
     Route: 048
  39. KLOR-CON [Concomitant]
     Dosage: 10-80 MEQ
     Route: 048

REACTIONS (2)
  - DIABETES MELLITUS [None]
  - DIABETIC FOOT [None]
